FAERS Safety Report 7477809-3 (Version None)
Quarter: 2011Q2

REPORT INFORMATION
  Report Type: 
  Country: None (occurrence: None)
  Receive Date: 20110511
  Receipt Date: 20110511
  Transmission Date: 20111010
  Serious: Yes (Other)
  Sender: FDA-Public Use
  Company Number: None

PATIENT
  Age: 50 Year
  Sex: Male

DRUGS (6)
  1. CARBAMAZEPINE [Concomitant]
  2. CENTRUM [Concomitant]
  3. PROPECIA [Concomitant]
  4. DEPAKOTE ER [Concomitant]
  5. SINGULAIR [Suspect]
     Dosage: 10MG DAILY ORAL
     Route: 048
     Dates: start: 20110406
  6. CALCIUM CARBONATE [Concomitant]

REACTIONS (2)
  - DISEASE RECURRENCE [None]
  - CONVULSION [None]
